FAERS Safety Report 23390678 (Version 2)
Quarter: 2024Q1

REPORT INFORMATION
  Report Type: Report from Study
  Country: US (occurrence: US)
  Receive Date: 20240111
  Receipt Date: 20240320
  Transmission Date: 20240410
  Serious: Yes (Other)
  Sender: FDA-Public Use
  Company Number: US-drreddys-CLI/USA/23/0173494

PATIENT
  Age: 18 Year
  Sex: Female

DRUGS (3)
  1. ACCUTANE [Suspect]
     Active Substance: ISOTRETINOIN
     Indication: Product used for unknown indication
     Dosage: RMA ISSUE DATE: 13 MARCH 2023 03:41:19 PM, 04 MAY 2023 10:15:05 AM, 01 JUNE 2023 08:44:21 AM
     Route: 065
     Dates: start: 20230313, end: 20230705
  2. ACCUTANE [Suspect]
     Active Substance: ISOTRETINOIN
  3. PREDNISONE [Concomitant]
     Active Substance: PREDNISONE
     Indication: Product used for unknown indication
     Dates: start: 20230705

REACTIONS (5)
  - Exposure during pregnancy [Unknown]
  - Oropharyngeal pain [Recovered/Resolved]
  - Infectious mononucleosis [Recovered/Resolved]
  - Hepatic enzyme increased [Recovered/Resolved]
  - Malaise [Recovered/Resolved]

NARRATIVE: CASE EVENT DATE: 20230705
